FAERS Safety Report 4296334-4 (Version None)
Quarter: 2004Q1

REPORT INFORMATION
  Report Type: 
  Country: None (occurrence: None)
  Receive Date: 20040213
  Receipt Date: 20040213
  Transmission Date: 20041129
  Serious: Yes (Hospitalization)
  Sender: FDA-Public Use
  Company Number: None

PATIENT
  Sex: Female
  Weight: 107.5025 kg

DRUGS (3)
  1. ESKALITH CR [Suspect]
     Indication: BIPOLAR DISORDER
     Dosage: 450 MG PO TID
     Route: 048
  2. SEROQUEL [Concomitant]
  3. RISPERDAL [Concomitant]

REACTIONS (2)
  - HALLUCINATION, VISUAL [None]
  - LEUKOCYTOSIS [None]
